FAERS Safety Report 5140631-7 (Version None)
Quarter: 2006Q4

REPORT INFORMATION
  Report Type: 
  Country: None (occurrence: None)
  Receive Date: 20061025
  Receipt Date: 20061013
  Transmission Date: 20070319
  Serious: Yes (Other)
  Sender: FDA-Public Use
  Company Number: 2006125537

PATIENT
  Sex: Male

DRUGS (7)
  1. LIPITOR [Suspect]
     Dosage: (40 MG)
  2. PERINDOPRIL ERBUMINE [Concomitant]
  3. NEULACTIL (PERICIAZINE) [Concomitant]
  4. MODURETIC 5-50 [Concomitant]
  5. CARDIZEM [Concomitant]
  6. DIABET (METFORMIN HYDROCHLORIDE) [Concomitant]
  7. DRUG, UNSPECIFIED [Concomitant]

REACTIONS (6)
  - INCREASED UPPER AIRWAY SECRETION [None]
  - MUSCLE SPASMS [None]
  - PHARYNGOLARYNGEAL PAIN [None]
  - POOR QUALITY SLEEP [None]
  - SNEEZING [None]
  - SPINAL OPERATION [None]
